FAERS Safety Report 17597609 (Version 1)
Quarter: 2020Q1

REPORT INFORMATION
  Report Type: Spontaneous
  Country: US (occurrence: US)
  Receive Date: 20200330
  Receipt Date: 20200330
  Transmission Date: 20200409
  Serious: No
  Sender: FDA-Public Use
  Company Number: US-SA-2020SA077885

PATIENT
  Age: 38 Year
  Sex: Female

DRUGS (1)
  1. LUMIZYME [Suspect]
     Active Substance: ALGLUCOSIDASE ALFA
     Indication: FABRY^S DISEASE
     Dosage: 220 MG, Q2 WEEKS
     Route: 041
     Dates: start: 201609

REACTIONS (2)
  - Nasopharyngitis [Unknown]
  - Product use in unapproved indication [Unknown]
